FAERS Safety Report 19006935 (Version 1)
Quarter: 2021Q1

REPORT INFORMATION
  Report Type: Other
  Country: CN (occurrence: CN)
  Receive Date: 20210315
  Receipt Date: 20210315
  Transmission Date: 20210420
  Serious: Yes (Other)
  Sender: FDA-Public Use
  Company Number: CN-ROCHE-2788299

PATIENT
  Age: 47 Year
  Sex: Male
  Weight: 65 kg

DRUGS (4)
  1. ATORVASTATIN [Concomitant]
     Active Substance: ATORVASTATIN
     Indication: LIPIDS DECREASED
  2. ACTILYSE [Suspect]
     Active Substance: ALTEPLASE
     Indication: CAPSULAR WARNING SYNDROME
     Dosage: INTRAVENOUS THROMBOLYSIS WITH ALTEPLASE
     Route: 042
  3. EDARAVONE [Concomitant]
     Active Substance: EDARAVONE
     Indication: DRUG THERAPY
     Route: 042
  4. ASPIRIN [ACETYLSALICYLIC ACID] [Concomitant]
     Active Substance: ASPIRIN
     Indication: ANTIPLATELET THERAPY

REACTIONS (4)
  - Cerebral artery stenosis [Unknown]
  - Cerebral arteriosclerosis [Unknown]
  - Arterial stenosis [Unknown]
  - Muscular weakness [Recovering/Resolving]
